FAERS Safety Report 17561657 (Version 2)
Quarter: 2020Q1

REPORT INFORMATION
  Report Type: Spontaneous
  Country: US (occurrence: US)
  Receive Date: 20200319
  Receipt Date: 20200320
  Transmission Date: 20200409
  Serious: Yes (Hospitalization)
  Sender: FDA-Public Use
  Company Number: US-PFIZER INC-2020116907

PATIENT
  Sex: Female

DRUGS (2)
  1. CYTOTEC [Suspect]
     Active Substance: MISOPROSTOL
     Dosage: 6 DF, UNK(RECEIVED 6 DOSES VAGINALLY)
     Route: 067
     Dates: start: 20200317
  2. CYTOTEC [Suspect]
     Active Substance: MISOPROSTOL
     Dosage: 2 DF, UNK(THE LAST 2 DOSES ORALLY)
     Route: 048
     Dates: start: 20200317

REACTIONS (3)
  - Movement disorder [Unknown]
  - Off label use [Unknown]
  - Product use issue [Unknown]
